FAERS Safety Report 13371303 (Version 1)
Quarter: 2017Q1

REPORT INFORMATION
  Report Type: Spontaneous
  Country: US (occurrence: US)
  Receive Date: 20170324
  Receipt Date: 20170324
  Transmission Date: 20170429
  Serious: Yes (Hospitalization, Other)
  Sender: FDA-Public Use
  Company Number: US-ELI_LILLY_AND_COMPANY-US201608002797

PATIENT
  Age: 47 Year
  Sex: Female

DRUGS (24)
  1. MAGNESIUM AMINO ACID CHELATE [Concomitant]
     Active Substance: MAGNESIUM
     Dosage: 100 MG, QD
     Route: 048
  2. ROBAXIN [Concomitant]
     Active Substance: METHOCARBAMOL
     Dosage: 500 MG, QID
     Route: 048
  3. MORPHINE [Concomitant]
     Active Substance: MORPHINE
     Dosage: 2 MG, PRN
     Route: 042
  4. CYMBALTA [Suspect]
     Active Substance: DULOXETINE HYDROCHLORIDE
     Dosage: 20 MG, UNKNOWN
     Route: 048
     Dates: start: 20130717
  5. CYMBALTA [Suspect]
     Active Substance: DULOXETINE HYDROCHLORIDE
     Dosage: 30 MG, BID
     Route: 048
  6. VITAMIN B COMPLEX [Concomitant]
     Active Substance: CYANOCOBALAMIN\DEXPANTHENOL\NIACINAMIDE\PYRIDOXINE HYDROCHLORIDE\RIBOFLAVIN 5^-PHOSPHATE SODIUM\THIAMINE HYDROCHLORIDE\VITAMIN B COMPLEX
     Dosage: UNK, UNKNOWN
     Route: 048
  7. POLYETHYLENE GLYCOL [Concomitant]
     Active Substance: POLYETHYLENE GLYCOLS
     Dosage: 17 G, QD
     Route: 048
  8. BIOTIN [Concomitant]
     Active Substance: BIOTIN
     Dosage: UNK, UNKNOWN
     Route: 048
  9. ONDANSETROM                        /00955301/ [Concomitant]
     Active Substance: ONDANSETRON
     Dosage: 4 MG, PRN
     Route: 042
  10. CASCARA SAGRADA                    /00143201/ [Concomitant]
     Active Substance: FRANGULA PURSHIANA BARK
     Dosage: UNK, UNKNOWN
     Route: 048
  11. VITAMIN B-6 [Concomitant]
     Active Substance: PYRIDOXINE
     Dosage: 250 MG, QD
     Route: 048
  12. CLOPIDOGREL [Concomitant]
     Active Substance: CLOPIDOGREL BISULFATE
     Dosage: 75 MG, QD
     Route: 048
  13. HYDROCODONE/ACETAMINOPHEN [Concomitant]
     Active Substance: ACETAMINOPHEN\HYDROCODONE
     Dosage: UNK, PRN
     Route: 048
  14. FOLVITE                            /00024201/ [Concomitant]
     Dosage: 400 UG, QD
     Route: 048
  15. NEURONTIN [Concomitant]
     Active Substance: GABAPENTIN
     Dosage: 300 MG, TID
     Route: 048
  16. LACTOBACILLUS ACIDOPHILUS [Concomitant]
     Active Substance: LACTOBACILLUS ACIDOPHILUS
     Dosage: UNK, UNKNOWN
     Route: 048
  17. SALMON OIL [Concomitant]
     Active Substance: FISH OIL
     Dosage: 1000 MG, UNK
     Route: 048
  18. ACETAMINOPHEN. [Concomitant]
     Active Substance: ACETAMINOPHEN
     Dosage: 650 MG, PRN
     Route: 048
  19. HEPARINE                           /00027701/ [Concomitant]
     Active Substance: HEPARIN SODIUM
     Dosage: 5000 IU, EVERY 8 HRS
     Route: 058
  20. ONDANSETROM                        /00955301/ [Concomitant]
     Active Substance: ONDANSETRON
     Dosage: 4 MG, PRN
     Route: 048
  21. SODIUM CHLORIDE. [Concomitant]
     Active Substance: SODIUM CHLORIDE
     Dosage: 10 ML, PRN
     Route: 042
  22. CYMBALTA [Suspect]
     Active Substance: DULOXETINE HYDROCHLORIDE
     Indication: PRODUCT USED FOR UNKNOWN INDICATION
     Dosage: UNK, UNKNOWN
     Route: 048
  23. CYMBALTA [Suspect]
     Active Substance: DULOXETINE HYDROCHLORIDE
     Dosage: 30 MG, UNKNOWN
     Route: 048
  24. SYNTHROID [Concomitant]
     Active Substance: LEVOTHYROXINE SODIUM
     Dosage: 25 MG, QD
     Route: 048

REACTIONS (37)
  - Hypomania [Unknown]
  - Insomnia [Unknown]
  - Paraesthesia [Unknown]
  - Headache [Unknown]
  - Depressed mood [Unknown]
  - Anhedonia [Unknown]
  - Affect lability [Unknown]
  - Syncope [Unknown]
  - Social avoidant behaviour [Unknown]
  - Disturbance in attention [Unknown]
  - Dizziness [Unknown]
  - Head injury [Unknown]
  - Panic attack [Unknown]
  - Hypersomnia [Unknown]
  - Fatigue [Unknown]
  - Hyperhidrosis [Unknown]
  - Tinnitus [Unknown]
  - Depression [Unknown]
  - Intrusive thoughts [Unknown]
  - Asthenia [Unknown]
  - Head injury [Unknown]
  - Dysphoria [Unknown]
  - Lethargy [Unknown]
  - Tremor [Unknown]
  - Irritability [Unknown]
  - Drug withdrawal syndrome [Unknown]
  - Anxiety [Unknown]
  - Seizure [Unknown]
  - Appetite disorder [Unknown]
  - Drug dose omission [Unknown]
  - Confusional state [Unknown]
  - Nausea [Unknown]
  - Sensory disturbance [Unknown]
  - Vertigo [Unknown]
  - Apathy [Unknown]
  - Agitation [Unknown]
  - Vomiting [Unknown]

NARRATIVE: CASE EVENT DATE: 20130723
